FAERS Safety Report 4634388-3 (Version None)
Quarter: 2005Q2

REPORT INFORMATION
  Report Type: 
  Country: None (occurrence: None)
  Receive Date: 20050411
  Receipt Date: 20050329
  Transmission Date: 20051028
  Serious: Yes (Hospitalization, Other)
  Sender: FDA-Public Use
  Company Number: 2004040669

PATIENT
  Age: 65 Year
  Sex: Male

DRUGS (5)
  1. VIAGRA [Suspect]
     Indication: ERECTILE DYSFUNCTION
     Dosage: 50 MG (50 MG, AS NECESSARY), ORAL
     Route: 048
     Dates: start: 20040501
  2. VALSARTAN [Concomitant]
  3. WARFARIN SODIUM [Concomitant]
  4. OMEPRAZOLE [Suspect]
  5. TEPRENONE (TEPRENONE0 [Concomitant]

REACTIONS (8)
  - CEREBRAL HAEMORRHAGE [None]
  - COLLAGEN DISORDER [None]
  - EPISTAXIS [None]
  - HAEMORRHAGE [None]
  - HAEMORRHAGE SUBCUTANEOUS [None]
  - IDIOPATHIC THROMBOCYTOPENIC PURPURA [None]
  - SELF-MEDICATION [None]
  - URINARY BLADDER HAEMORRHAGE [None]
